FAERS Safety Report 9786262 (Version 2)
Quarter: 2014Q1

REPORT INFORMATION
  Report Type: Spontaneous
  Country: FR (occurrence: None)
  Receive Date: 20131224
  Receipt Date: 20140131
  Transmission Date: 20141002
  Serious: Yes (Other)
  Sender: FDA-Public Use
  Company Number: FK201305507

PATIENT
  Age: 27 Year
  Sex: Female

DRUGS (2)
  1. CLINDAMYCIN [Suspect]
     Indication: OSTEITIS
     Dosage: THREE INJECTIONS
     Dates: start: 20131130, end: 20131201
  2. VANCOMYCIN MYLAN (VANCOMYCIN HYDROCHLORIDE) [Concomitant]

REACTIONS (1)
  - Acute generalised exanthematous pustulosis [None]
